FAERS Safety Report 10687630 (Version 1)
Quarter: 2014Q4

REPORT INFORMATION
  Report Type: Spontaneous
  Country: US (occurrence: None)
  Receive Date: 20141231
  Receipt Date: 20141231
  Transmission Date: 20150529
  Serious: Yes (Life-Threatening)
  Sender: FDA-Public Use
  Company Number: None

PATIENT
  Age: 46 Year
  Sex: Female

DRUGS (1)
  1. DUONEB [Suspect]
     Active Substance: ALBUTEROL SULFATE\IPRATROPIUM BROMIDE
     Indication: DYSPNOEA
     Dosage: VIAL SINGLE DOSE INHALATION
     Route: 055
     Dates: start: 20141224, end: 20141224

REACTIONS (3)
  - Dyspnoea [None]
  - Documented hypersensitivity to administered product [None]
  - Condition aggravated [None]

NARRATIVE: CASE EVENT DATE: 20141224
